FAERS Safety Report 8464386-3 (Version None)
Quarter: 2012Q2

REPORT INFORMATION
  Report Type: 
  Country: None (occurrence: None)
  Receive Date: 20120626
  Receipt Date: 20120618
  Transmission Date: 20120825
  Serious: Yes (Hospitalization)
  Sender: FDA-Public Use
  Company Number: FR-BRISTOL-MYERS SQUIBB COMPANY-16328122

PATIENT
  Age: 53 Year
  Sex: Male

DRUGS (15)
  1. ATORVASTATIN [Concomitant]
     Dosage: LONG-TERM THERAPY
  2. VITAMIN D [Concomitant]
     Dosage: LONG-TERM THERAPY
  3. ACARBOSE [Concomitant]
     Dosage: LONG-TERM THERAPY
  4. ONGLYZA [Suspect]
     Indication: DIABETES MELLITUS
     Dosage: INTERRUPTED ON 10NOV11,RESTARTED 28NOV11
     Route: 048
     Dates: start: 20110901, end: 20120101
  5. NEORAL [Concomitant]
     Dosage: LONG-TERM THERAPY
  6. FERROUS SULFATE TAB [Concomitant]
     Dosage: LONG-TERM THERAPY
  7. ALFUZOSIN HCL [Concomitant]
     Dosage: LONG-TERM THERAPY
  8. ARANESP [Concomitant]
     Dosage: LONG-TERM THERAPY
  9. PLAVIX [Concomitant]
     Dosage: LONG-TERM THERAPY
  10. CALCIDIA [Concomitant]
     Dosage: LONG-TERM THERAPY
  11. IRBESARTAN [Concomitant]
     Dosage: LONG-TERM THERAPY
  12. AMLODIPINE BESYLATE [Concomitant]
     Dosage: LONG-TERM THERAPY
  13. CELL CEPT [Concomitant]
     Dosage: LONG-TERM THERAPY
  14. NEXIUM [Concomitant]
     Dosage: LONG-TERM THERAPY
  15. ATENOLOL [Concomitant]
     Dosage: LONG-TERM THERAPY

REACTIONS (3)
  - PROTEINURIA [None]
  - GENERALISED OEDEMA [None]
  - HYPOALBUMINAEMIA [None]
